FAERS Safety Report 8929875 (Version 5)
Quarter: 2014Q1

REPORT INFORMATION
  Report Type: Spontaneous
  Country: JP (occurrence: JP)
  Receive Date: 20121128
  Receipt Date: 20140314
  Transmission Date: 20141002
  Serious: Yes (Hospitalization, Other)
  Sender: FDA-Public Use
  Company Number: PHHY2012JP107928

PATIENT
  Age: 70 Year
  Sex: Male

DRUGS (44)
  1. NEORAL SIM03+CAP [Suspect]
     Indication: RENAL TRANSPLANT
     Dosage: 300 MG, DAILY
     Route: 048
     Dates: start: 20110603, end: 20110605
  2. NEORAL SIM03+CAP [Suspect]
     Indication: IMMUNOSUPPRESSION
     Dosage: 300 MG, DAILY
     Route: 048
     Dates: start: 20110608, end: 20110610
  3. NEORAL SIM03+CAP [Suspect]
     Dosage: 250 MG, DAILY
     Route: 048
     Dates: start: 20110611, end: 20110614
  4. NEORAL SIM03+CAP [Suspect]
     Dosage: 300 MG, DAILY
     Route: 048
     Dates: start: 20110615, end: 20110616
  5. NEORAL SIM03+CAP [Suspect]
     Dosage: 250 MG, DAILY
     Route: 048
     Dates: start: 20110617, end: 20110618
  6. NEORAL SIM03+CAP [Suspect]
     Dosage: 200 MG, DAILY
     Route: 048
     Dates: start: 20110618, end: 20110621
  7. NEORAL SIM03+CAP [Suspect]
     Dosage: 250 MG, DAILY
     Route: 048
     Dates: start: 20110621, end: 20110708
  8. NEORAL SIM03+CAP [Suspect]
     Dosage: 150 MG, DAILY
     Route: 048
     Dates: start: 20110709, end: 20111017
  9. NEORAL SIM03+CAP [Suspect]
     Dosage: 120 MG, DAILY
     Route: 048
     Dates: start: 20111018, end: 20120919
  10. NEORAL SIM03+CAP [Suspect]
     Dosage: 50 MG, DAILY
     Route: 048
     Dates: start: 20120920, end: 20120921
  11. NEORAL SIM03+CAP [Suspect]
     Dosage: 20 MG, DAILY
     Route: 048
     Dates: start: 20120922, end: 20120923
  12. NEORAL SIM03+CAP [Suspect]
     Dosage: 10 MG, DAILY
     Route: 048
     Dates: start: 20120924, end: 20121121
  13. NEORAL SIM03+CAP [Suspect]
     Dosage: 20 MG, DAILY
     Route: 048
     Dates: start: 20121122, end: 20130206
  14. NEORAL SIM03+CAP [Suspect]
     Dosage: 40 MG, DAILY
     Route: 048
     Dates: start: 20130207, end: 20130227
  15. NEORAL SIM03+CAP [Suspect]
     Dosage: 120 MG, DAILY
     Route: 048
     Dates: start: 20130228
  16. SIMULECT [Suspect]
     Indication: RENAL TRANSPLANT
     Dosage: 20 MG, DAILY
     Route: 042
     Dates: start: 20110606, end: 20110606
  17. SIMULECT [Suspect]
     Dosage: 20 MG, DAILY
     Route: 042
     Dates: start: 20110610, end: 20110610
  18. CERTICAN [Suspect]
     Dosage: 1.5 MG, DAILY
     Route: 048
     Dates: start: 20120920, end: 20130227
  19. CELLCEPT [Suspect]
     Indication: IMMUNOSUPPRESSION
     Dosage: 500 MG, DAILY
     Route: 048
     Dates: start: 20110509, end: 20110606
  20. CELLCEPT [Suspect]
     Indication: RENAL TRANSPLANT
     Dosage: 1000 MG, DAILY
     Route: 048
     Dates: start: 20110607, end: 20110620
  21. CELLCEPT [Suspect]
     Dosage: 500 MG, DAILY
     Route: 048
     Dates: start: 20110621
  22. CELLCEPT [Suspect]
     Dosage: 1000 MG, DAILY
     Route: 048
     Dates: end: 20120919
  23. CELLCEPT [Suspect]
     Dosage: 1000 MG, DAILY
     Route: 048
     Dates: start: 20130228
  24. MEDROL [Suspect]
     Indication: IMMUNOSUPPRESSION
     Dosage: 40 MG, DAILY
     Route: 048
     Dates: start: 20110607, end: 20110613
  25. MEDROL [Suspect]
     Indication: RENAL TRANSPLANT
     Dosage: 24 MG, DAILY
     Route: 048
     Dates: start: 20110614, end: 20110620
  26. MEDROL [Suspect]
     Dosage: 12 MG, DAILY
     Route: 048
     Dates: start: 20110621, end: 20110627
  27. MEDROL [Suspect]
     Dosage: 8 MG, DAILY
     Route: 048
     Dates: start: 20110628, end: 20110704
  28. MEDROL [Suspect]
     Dosage: 4 MG, DAILY
     Route: 048
     Dates: start: 20110705
  29. RITUXAN [Suspect]
     Dosage: 200 MG, DAILY
     Route: 042
     Dates: start: 20110524, end: 20110524
  30. SANDIMMUN [Concomitant]
     Indication: RENAL TRANSPLANT
     Dosage: 120 MG, DAILY
     Route: 042
     Dates: start: 20110606, end: 20110607
  31. SANDIMMUN [Concomitant]
     Dosage: 84 MG, DAILY
     Route: 042
     Dates: start: 20110607, end: 20110608
  32. SOLU MEDROL [Concomitant]
     Indication: RENAL TRANSPLANT
     Dosage: 500 MG
     Route: 042
     Dates: start: 20110606, end: 20110606
  33. VALIXA [Concomitant]
     Indication: PROPHYLAXIS
     Dosage: 450 MG
     Route: 048
     Dates: start: 20110623, end: 20110705
  34. BAKTAR [Concomitant]
     Indication: INFECTION PROPHYLAXIS
     Dosage: 2 DF
     Route: 048
     Dates: start: 20110824
  35. BAKTAR [Concomitant]
     Dosage: 4 DF
     Route: 048
     Dates: start: 20110824
  36. BAKTAR [Concomitant]
     Dosage: 9 DF
     Route: 048
     Dates: start: 20110824
  37. BAKTAR [Concomitant]
     Dosage: 1 DF
     Route: 048
     Dates: start: 20110824
  38. FUNGUARD [Concomitant]
     Indication: INFECTION PROPHYLAXIS
     Dosage: 50 MG
     Route: 042
     Dates: start: 20110824, end: 20110829
  39. DETANTOL [Concomitant]
     Indication: HYPERTENSION
     Dosage: 3 MG
     Route: 048
     Dates: start: 20110616
  40. AMLODIPINE [Concomitant]
     Indication: HYPERTENSION
     Dosage: 5 MG
     Route: 048
     Dates: start: 20110616
  41. CRAVIT [Concomitant]
     Indication: INFECTION PROPHYLAXIS
     Dosage: 500 MG
     Route: 048
     Dates: start: 20110612, end: 20110617
  42. CRAVIT [Concomitant]
     Dosage: 250 MG
     Route: 048
     Dates: start: 20110612, end: 20110617
  43. TAKEPRON [Concomitant]
     Indication: INFECTION PROPHYLAXIS
     Dosage: 15 MG
     Route: 048
     Dates: start: 20110607
  44. EVEROLIMUS [Concomitant]
     Indication: RENAL TRANSPLANT
     Dosage: 1.5 MG
     Route: 048
     Dates: start: 20120920, end: 20130227

REACTIONS (4)
  - Adenoviral haemorrhagic cystitis [Recovered/Resolved]
  - Pneumocystis jirovecii pneumonia [Recovered/Resolved]
  - Interstitial lung disease [Unknown]
  - Neutropenia [Recovered/Resolved]
